FAERS Safety Report 17668992 (Version 1)
Quarter: 2020Q2

REPORT INFORMATION
  Report Type: Spontaneous
  Country: US (occurrence: US)
  Receive Date: 20200415
  Receipt Date: 20200415
  Transmission Date: 20200713
  Serious: Yes (Death, Other)
  Sender: FDA-Public Use
  Company Number: US-SA-2020SA096322

PATIENT

DRUGS (1)
  1. ZANTAC 75 [Suspect]
     Active Substance: RANITIDINE HYDROCHLORIDE
     Dosage: ABOUT FOUR TIMES PER WEEK
     Dates: start: 2010

REACTIONS (3)
  - Pain [Unknown]
  - Hepatic cancer [Fatal]
  - Gastric cancer [Unknown]

NARRATIVE: CASE EVENT DATE: 201702
